FAERS Safety Report 6451218-8 (Version None)
Quarter: 2009Q4

REPORT INFORMATION
  Report Type: 
  Country: None (occurrence: None)
  Receive Date: 20091123
  Receipt Date: 20091113
  Transmission Date: 20100525
  Serious: Yes (Death)
  Sender: FDA-Public Use
  Company Number: FR-ABBOTT-09P-056-0598660-01

PATIENT
  Sex: Female
  Weight: 98 kg

DRUGS (1)
  1. SIBUTRAMINE [Suspect]
     Indication: OBESITY
     Route: 048
     Dates: start: 20031219, end: 20060420

REACTIONS (1)
  - BRAIN NEOPLASM [None]
